FAERS Safety Report 6415690-1 (Version None)
Quarter: 2009Q4

REPORT INFORMATION
  Report Type: 
  Country: None (occurrence: None)
  Receive Date: 20091027
  Receipt Date: 20091013
  Transmission Date: 20100525
  Serious: Yes (Other)
  Sender: FDA-Public Use
  Company Number: US-JNJFOC-20091004706

PATIENT
  Sex: Female
  Weight: 58.97 kg

DRUGS (5)
  1. ULTRAM ER [Suspect]
     Indication: PAIN
     Route: 048
  2. LIDODERM [Concomitant]
     Route: 062
  3. LEXAPRO [Concomitant]
     Route: 048
  4. ORPHENADRINE CITRATE [Concomitant]
     Route: 048
  5. ACIPHEX [Concomitant]
     Route: 048

REACTIONS (7)
  - BLOOD PRESSURE DECREASED [None]
  - HEADACHE [None]
  - LOSS OF CONSCIOUSNESS [None]
  - NAUSEA [None]
  - VERTIGO [None]
  - VISION BLURRED [None]
  - VOMITING [None]
